FAERS Safety Report 25723647 (Version 2)
Quarter: 2025Q3

REPORT INFORMATION
  Report Type: Spontaneous
  Country: US (occurrence: US)
  Receive Date: 20250825
  Receipt Date: 20250828
  Transmission Date: 20251020
  Serious: Yes (Hospitalization)
  Sender: PFIZER
  Company Number: US-PFIZER INC-202500168075

PATIENT
  Age: 47 Year

DRUGS (1)
  1. IBRANCE [Suspect]
     Active Substance: PALBOCICLIB

REACTIONS (16)
  - Neutropenia [Unknown]
  - Leukopenia [Unknown]
  - Electrocardiogram QT prolonged [Unknown]
  - Neuropathy peripheral [Unknown]
  - Fatigue [Unknown]
  - Musculoskeletal pain [Unknown]
  - Nausea [Unknown]
  - Diarrhoea [Unknown]
  - Hot flush [Unknown]
  - Dysgeusia [Unknown]
  - Bone density decreased [Unknown]
  - Alopecia [Unknown]
  - Decreased appetite [Unknown]
  - Aspartate aminotransferase increased [Unknown]
  - Alanine aminotransferase increased [Unknown]
  - Gamma-glutamyltransferase increased [Unknown]
